FAERS Safety Report 5315372-3 (Version None)
Quarter: 2007Q1

REPORT INFORMATION
  Report Type: 
  Country: None (occurrence: None)
  Receive Date: 20070130
  Receipt Date: 20060810
  Transmission Date: 20070707
  Serious: Yes (Hospitalization)
  Sender: FDA-Public Use
  Company Number: 147003USA

PATIENT
  Age: 40 Year
  Sex: Female
  Weight: 61.2356 kg

DRUGS (1)
  1. COPAXONE [Suspect]
     Indication: MULTIPLE SCLEROSIS
     Dosage: 20 MG (20 MG,ONCE A DAY), SUBCUTANEOUS
     Route: 058
     Dates: start: 20000101, end: 20060501

REACTIONS (2)
  - CHOLELITHIASIS [None]
  - PANCREATITIS [None]
